FAERS Safety Report 6911331-5 (Version None)
Quarter: 2010Q3

REPORT INFORMATION
  Report Type: 
  Country: None (occurrence: None)
  Receive Date: 20100806
  Receipt Date: 20100804
  Transmission Date: 20110219
  Serious: Yes (Other)
  Sender: FDA-Public Use
  Company Number: GB-ROXANE LABORATORIES, INC.-2010-RO-00976RO

PATIENT
  Age: 8 Month

DRUGS (2)
  1. METHADONE HCL [Suspect]
     Indication: DRUG EXPOSURE DURING PREGNANCY
     Route: 064
  2. ANTIDEPRESSANTS [Suspect]
     Indication: DRUG EXPOSURE DURING PREGNANCY
     Route: 064

REACTIONS (4)
  - ASTIGMATISM [None]
  - HYPERMETROPIA [None]
  - NYSTAGMUS [None]
  - VISUAL EVOKED POTENTIALS ABNORMAL [None]
